FAERS Safety Report 21582172 (Version 1)
Quarter: 2022Q4

REPORT INFORMATION
  Report Type: Spontaneous
  Country: US (occurrence: US)
  Receive Date: 20221111
  Receipt Date: 20221111
  Transmission Date: 20230112
  Serious: Yes (Hospitalization, Other)
  Sender: FDA-Public Use
  Company Number: US-NOVOPROD-976348

PATIENT
  Sex: Female

DRUGS (1)
  1. OZEMPIC [Suspect]
     Active Substance: SEMAGLUTIDE
     Indication: Product used for unknown indication
     Dosage: 1 MG, QW
     Route: 058
     Dates: start: 20221011

REACTIONS (7)
  - Dyspnoea [Recovering/Resolving]
  - Cholecystectomy [Recovering/Resolving]
  - Heart rate increased [Recovering/Resolving]
  - Vomiting [Recovering/Resolving]
  - Incorrect dose administered [Unknown]
  - Blood magnesium decreased [Unknown]
  - Blood calcium decreased [Unknown]

NARRATIVE: CASE EVENT DATE: 20221011
